FAERS Safety Report 23808481 (Version 2)
Quarter: 2025Q1

REPORT INFORMATION
  Report Type: Spontaneous
  Country: US (occurrence: US)
  Receive Date: 20240502
  Receipt Date: 20250325
  Transmission Date: 20250409
  Serious: Yes (Other)
  Sender: PFIZER
  Company Number: US-PFIZER INC-PV202400056746

PATIENT
  Age: 58 Year
  Sex: Female

DRUGS (19)
  1. XELJANZ XR [Suspect]
     Active Substance: TOFACITINIB CITRATE
     Dates: start: 202405
  2. OMEPRAZOLE [Concomitant]
     Active Substance: OMEPRAZOLE
  3. ZYRTEC [Concomitant]
     Active Substance: CETIRIZINE HYDROCHLORIDE
  4. TYLENOL [Concomitant]
     Active Substance: ACETAMINOPHEN
  5. METHOTREXATE [Concomitant]
     Active Substance: METHOTREXATE
  6. SUCRALFATE [Concomitant]
     Active Substance: SUCRALFATE
  7. TRAMADOL HCL [Concomitant]
     Active Substance: TRAMADOL HYDROCHLORIDE
  8. EPINEPHRINE [Concomitant]
     Active Substance: EPINEPHRINE
  9. FLONASE ALLERGY RELIEF [Concomitant]
     Active Substance: FLUTICASONE PROPIONATE
  10. TACROLIMUS [Concomitant]
     Active Substance: TACROLIMUS
  11. FAMOTIDINE [Concomitant]
     Active Substance: FAMOTIDINE
  12. CITALOPRAM HYDROBROMIDE [Concomitant]
     Active Substance: CITALOPRAM HYDROBROMIDE
  13. TAFLUPROST [Concomitant]
     Active Substance: TAFLUPROST
  14. ROSUVASTATIN [Concomitant]
     Active Substance: ROSUVASTATIN
  15. ENALAPRIL [Concomitant]
     Active Substance: ENALAPRIL
  16. LEUCOVORIN [Concomitant]
     Active Substance: LEUCOVORIN\LEUCOVORIN CALCIUM
  17. TRAZODONE HCL [Concomitant]
     Active Substance: TRAZODONE HYDROCHLORIDE
  18. ADDERALL [Concomitant]
     Active Substance: AMPHETAMINE ASPARTATE\AMPHETAMINE SULFATE\DEXTROAMPHETAMINE SACCHARATE\DEXTROAMPHETAMINE SULFATE
  19. GABAPENTIN [Concomitant]
     Active Substance: GABAPENTIN

REACTIONS (12)
  - Pain [Recovering/Resolving]
  - Glaucoma [Unknown]
  - Pharyngitis streptococcal [Recovered/Resolved]
  - Bronchitis [Recovered/Resolved]
  - Influenza [Recovered/Resolved]
  - Food allergy [Recovering/Resolving]
  - Oral mucosal blistering [Recovered/Resolved]
  - Aphthous ulcer [Recovered/Resolved]
  - COVID-19 [Unknown]
  - Sinusitis [Unknown]
  - Swollen tear duct [Unknown]
  - Red blood cell sedimentation rate increased [Unknown]

NARRATIVE: CASE EVENT DATE: 20240801
